FAERS Safety Report 8547875-2 (Version None)
Quarter: 2012Q3

REPORT INFORMATION
  Report Type: 
  Country: None (occurrence: None)
  Receive Date: 20120728
  Receipt Date: 20120713
  Transmission Date: 20120928
  Serious: No
  Sender: FDA-Public Use
  Company Number: US-009507513-1207USA008769

PATIENT

DRUGS (2)
  1. CLARITIN [Suspect]
     Indication: SEASONAL ALLERGY
     Dosage: 5 MG, QD
     Route: 048
  2. CLARITIN [Suspect]
     Dosage: 10 MG, ONCE
     Route: 048

REACTIONS (2)
  - COUGH [None]
  - ACCIDENTAL OVERDOSE [None]
